FAERS Safety Report 6743920-5 (Version None)
Quarter: 2010Q2

REPORT INFORMATION
  Report Type: 
  Country: None (occurrence: None)
  Receive Date: 20100527
  Receipt Date: 20100513
  Transmission Date: 20101027
  Serious: Yes (Other)
  Sender: FDA-Public Use
  Company Number: PHEH2007US12316

PATIENT
  Sex: Female

DRUGS (17)
  1. ELIDEL [Suspect]
     Indication: DERMATITIS
     Dosage: 30 G, UNK
     Route: 061
     Dates: start: 20020901
  2. PREDNISONE TAB [Concomitant]
  3. ZANTAC [Concomitant]
  4. ZOFRAN [Concomitant]
  5. PHENERGAN ^AVENTIS PHARMA^ [Concomitant]
  6. BENADRYL ^ACHE^ [Concomitant]
  7. BACTRIM [Concomitant]
  8. VINCRISTINE [Concomitant]
  9. DOXORUBICIN HCL [Concomitant]
  10. BLEOMYCIN [Concomitant]
  11. ETOPOSIDE [Concomitant]
  12. CYCLOPHOSPHAMIDE [Concomitant]
  13. ACETAMINOPHEN [Concomitant]
  14. DIPHENHYDRAMINE HYDROCHLORIDE [Concomitant]
  15. ONDANSETRON [Concomitant]
  16. PROMETHAZINE [Concomitant]
  17. TAGAMET [Concomitant]

REACTIONS (6)
  - CONJUNCTIVITIS INFECTIVE [None]
  - CORNEAL NEOVASCULARISATION [None]
  - CORNEAL OPACITY [None]
  - HODGKIN'S DISEASE [None]
  - HYPERSENSITIVITY [None]
  - KERATITIS INTERSTITIAL [None]
